FAERS Safety Report 6402778-4 (Version None)
Quarter: 2009Q4

REPORT INFORMATION
  Report Type: 
  Country: None (occurrence: None)
  Receive Date: 20091016
  Receipt Date: 20071016
  Transmission Date: 20100525
  Serious: Yes (Disabling)
  Sender: FDA-Public Use
  Company Number: US-ASTRAZENECA-2006UW08467

PATIENT
  Sex: Female
  Weight: 121.6 kg

DRUGS (11)
  1. SEROQUEL [Suspect]
     Dosage: 100 MG-600 MG
     Route: 048
     Dates: start: 20000101
  2. LIPITOR [Concomitant]
     Indication: HYPERLIPIDAEMIA
     Dates: start: 20040101
  3. TYLENOL W/ CODEINE NO. 3 [Concomitant]
     Indication: PAIN
     Dosage: ONE OR TWO Q 4-6 H P.R.N.
     Route: 048
     Dates: start: 20030214
  4. NEURONTIN [Concomitant]
     Indication: PAIN
     Dates: start: 20061227
  5. TRILEPTAL [Concomitant]
     Dates: start: 20061227
  6. ZOCOR [Concomitant]
     Route: 048
     Dates: start: 20050101
  7. METFORMIN HYDROCHLORIDE [Concomitant]
     Dosage: 500 MG-1500 MG
     Route: 048
     Dates: start: 20050101
  8. LISINOPRIL [Concomitant]
     Route: 048
     Dates: start: 20050101
  9. DEPAKOTE [Concomitant]
     Route: 048
     Dates: start: 20030813
  10. HYDROXYZINE [Concomitant]
     Dates: start: 19991028
  11. CHLORPROMAZINE [Concomitant]
     Dates: start: 19991028

REACTIONS (1)
  - ILL-DEFINED DISORDER [None]
